FAERS Safety Report 10332634 (Version 2)
Quarter: 2016Q2

REPORT INFORMATION
  Report Type: Spontaneous
  Country: US (occurrence: US)
  Receive Date: 20140722
  Receipt Date: 20160608
  Transmission Date: 20160815
  Serious: No
  Sender: FDA-Public Use
  Company Number: US-ASTRAZENECA-2014SE03300

PATIENT
  Age: 39 Year
  Sex: Male
  Weight: 95.3 kg

DRUGS (8)
  1. SEROQUEL XR [Suspect]
     Active Substance: QUETIAPINE FUMARATE
     Indication: BIPOLAR DISORDER
     Route: 048
  2. SEROQUEL XR [Suspect]
     Active Substance: QUETIAPINE FUMARATE
     Indication: DRUG ABUSE
     Route: 048
  3. SEROQUEL XR [Suspect]
     Active Substance: QUETIAPINE FUMARATE
     Indication: DEPRESSION
     Route: 048
  4. XANAX [Concomitant]
     Active Substance: ALPRAZOLAM
     Indication: ANXIETY
     Dosage: 0.25MG AS REQUIRED
  5. XANAX [Concomitant]
     Active Substance: ALPRAZOLAM
     Indication: ANXIETY
     Dosage: 0.5 UNK
  6. SEROQUEL XR [Suspect]
     Active Substance: QUETIAPINE FUMARATE
     Indication: INSOMNIA
     Route: 048
  7. REMAPARIL [Concomitant]
     Indication: TYPE 2 DIABETES MELLITUS
  8. METFORMIN [Concomitant]
     Active Substance: METFORMIN HYDROCHLORIDE
     Indication: TYPE 2 DIABETES MELLITUS

REACTIONS (13)
  - Drug dependence [Unknown]
  - Hepatitis alcoholic [Unknown]
  - Sleep apnoea syndrome [Unknown]
  - Weight fluctuation [Unknown]
  - Schizophrenia [Unknown]
  - Ammonia increased [Unknown]
  - Type 2 diabetes mellitus [Unknown]
  - Psychotic disorder [Unknown]
  - Intentional product misuse [Unknown]
  - Hallucination [Unknown]
  - Abnormal behaviour [Unknown]
  - Alcohol use [Unknown]
  - Dysphonia [Unknown]

NARRATIVE: CASE EVENT DATE: 2013
